FAERS Safety Report 5446867-X (Version None)
Quarter: 2007Q3

REPORT INFORMATION
  Report Type: 
  Country: None (occurrence: None)
  Receive Date: 20070907
  Receipt Date: 20070831
  Transmission Date: 20080115
  Serious: Yes (Other)
  Sender: FDA-Public Use
  Company Number: JP-PFIZER INC-2007073544

PATIENT
  Age: 78 Year
  Sex: Female

DRUGS (4)
  1. ALPRAZOLAM [Suspect]
     Indication: AUTONOMIC NEUROPATHY
     Dosage: DAILY DOSE:.8MG
     Route: 048
  2. ZOLPIDEM [Concomitant]
  3. UNOPROSTONE ISOPROPYL [Concomitant]
  4. TIMOPTIC [Concomitant]

REACTIONS (2)
  - INTRAOCULAR PRESSURE INCREASED [None]
  - VISUAL FIELD DEFECT [None]
